FAERS Safety Report 24724450 (Version 1)
Quarter: 2024Q4

REPORT INFORMATION
  Report Type: Spontaneous
  Country: US (occurrence: US)
  Receive Date: 20241212
  Receipt Date: 20241212
  Transmission Date: 20250115
  Serious: No
  Sender: ENDO
  Company Number: US-ENDO USA, INC.-2024-002799

PATIENT
  Sex: Female

DRUGS (1)
  1. FROVA [Suspect]
     Active Substance: FROVATRIPTAN SUCCINATE
     Indication: Migraine
     Dosage: 0.5 DOSAGE FORM, PRN (HALF TABLET AS NEEDED)
     Route: 065

REACTIONS (2)
  - Blood sodium abnormal [Recovered/Resolved]
  - Therapeutic product effect incomplete [Unknown]
